FAERS Safety Report 8917246 (Version 1)
Quarter: 2012Q4

REPORT INFORMATION
  Report Type: 
  Country: US (occurrence: US)
  Receive Date: 20121119
  Receipt Date: 20121119
  Transmission Date: 20130627
  Serious: Yes (Other)
  Sender: FDA-Public Use
  Company Number: US-BAYER-2012-120714

PATIENT
  Age: 36 Year
  Sex: Female
  Weight: 72.56 kg

DRUGS (1)
  1. PHILLIPS^ MILK OF MAGNESIA LIQUID ORIGINAL [Suspect]
     Indication: CONSTIPATION
     Dosage: 2 TBSP, ONCE
     Route: 048
     Dates: start: 20121115, end: 20121115

REACTIONS (1)
  - Rectal haemorrhage [Unknown]
